FAERS Safety Report 9328975 (Version 1)
Quarter: 2013Q2

REPORT INFORMATION
  Report Type: Spontaneous
  Country: US (occurrence: US)
  Receive Date: 20130604
  Receipt Date: 20130604
  Transmission Date: 20140414
  Serious: No
  Sender: FDA-Public Use
  Company Number: US-SANOFI-AVENTIS-2013SA039880

PATIENT
  Age: 63 Year
  Sex: Female

DRUGS (1)
  1. LANTUS [Suspect]
     Indication: TYPE 2 DIABETES MELLITUS
     Dosage: TAKEN FROM- 1 YEAR, DOSE-32 UNITS IN AM AND 22 UNITS IN PM
     Route: 065

REACTIONS (3)
  - Hot flush [Unknown]
  - Hyperhidrosis [Unknown]
  - Back pain [Unknown]
